FAERS Safety Report 5409112-7 (Version None)
Quarter: 2007Q3

REPORT INFORMATION
  Report Type: 
  Country: None (occurrence: None)
  Receive Date: 20070806
  Receipt Date: 20070727
  Transmission Date: 20080115
  Serious: Yes (Death)
  Sender: FDA-Public Use
  Company Number: TPG2007A00418

PATIENT
  Sex: Female

DRUGS (1)
  1. ACTOS [Suspect]
     Indication: TYPE 2 DIABETES MELLITUS
     Dosage: 30 MG PER ORAL
     Route: 048

REACTIONS (4)
  - ABDOMINAL DISCOMFORT [None]
  - ANOREXIA [None]
  - DYSPEPSIA [None]
  - PANCREATIC CARCINOMA [None]
